FAERS Safety Report 23697234 (Version 3)
Quarter: 2024Q2

REPORT INFORMATION
  Report Type: Spontaneous
  Country: US (occurrence: US)
  Receive Date: 20240402
  Receipt Date: 20240508
  Transmission Date: 20240715
  Serious: No
  Sender: FDA-Public Use
  Company Number: US-AMGEN-USASP2024066353

PATIENT
  Age: 90 Year
  Sex: Female

DRUGS (1)
  1. REPATHA [Suspect]
     Active Substance: EVOLOCUMAB
     Indication: Product used for unknown indication
     Dosage: 140 MILLIGRAM
     Route: 065

REACTIONS (3)
  - Drug dose omission by device [Unknown]
  - Hypoaesthesia [Unknown]
  - Device use error [Unknown]

NARRATIVE: CASE EVENT DATE: 20240101
